FAERS Safety Report 4539433-1 (Version None)
Quarter: 2004Q4

REPORT INFORMATION
  Report Type: 
  Country: None (occurrence: None)
  Receive Date: 20041228
  Receipt Date: 20041223
  Transmission Date: 20050328
  Serious: Yes (Hospitalization)
  Sender: FDA-Public Use
  Company Number: PHRM2004FR03753

PATIENT
  Age: 77 Year

DRUGS (3)
  1. LAMISIL [Suspect]
     Dosage: 250 MG/DAY
     Route: 048
     Dates: start: 20040621, end: 20040703
  2. FUCIDINE CAP [Suspect]
     Route: 061
     Dates: start: 20040625, end: 20040710
  3. PYOSTACINE [Suspect]
     Dosage: 2 G/DAY
     Route: 048
     Dates: start: 20040625, end: 20040710

REACTIONS (6)
  - ACUTE PULMONARY OEDEMA [None]
  - BACK PAIN [None]
  - BLOOD CREATININE INCREASED [None]
  - HAEMODIALYSIS [None]
  - NEPHRITIS INTERSTITIAL [None]
  - OEDEMA [None]
